FAERS Safety Report 14183269 (Version 1)
Quarter: 2017Q4

REPORT INFORMATION
  Report Type: Report from Study
  Country: None (occurrence: IT)
  Receive Date: 20171113
  Receipt Date: 20171113
  Transmission Date: 20180321
  Serious: Yes (Death)
  Sender: FDA-Public Use
  Company Number: IT-ABBVIE-17K-083-2161556-00

PATIENT
  Age: 77 Year
  Sex: Male

DRUGS (1)
  1. DUODOPA [Suspect]
     Active Substance: CARBIDOPA\LEVODOPA
     Indication: PARKINSON^S DISEASE
     Dosage: MD 3,5??CR 3,2??ED 2
     Route: 050
     Dates: start: 20170410, end: 20171030

REACTIONS (2)
  - Urinary tract obstruction [Fatal]
  - Pyelocystitis [Fatal]

NARRATIVE: CASE EVENT DATE: 201710
